FAERS Safety Report 12964758 (Version 2)
Quarter: 2016Q4

REPORT INFORMATION
  Report Type: Spontaneous
  Country: BR (occurrence: BR)
  Receive Date: 20161122
  Receipt Date: 20161130
  Transmission Date: 20170207
  Serious: Yes (Hospitalization, Other)
  Sender: FDA-Public Use
  Company Number: BR-PFIZER INC-2016424620

PATIENT
  Age: 58 Year
  Sex: Male

DRUGS (3)
  1. SUTENT [Suspect]
     Active Substance: SUNITINIB MALATE
     Indication: NEOPLASM MALIGNANT
     Dosage: 50 MG, CYCLE 4/2
     Dates: start: 20160812, end: 20160908
  2. SUTENT [Suspect]
     Active Substance: SUNITINIB MALATE
     Dosage: UNK, CYCLE 2/1
  3. OMEPRAZOLE. [Concomitant]
     Active Substance: OMEPRAZOLE
     Indication: GASTRIC DISORDER
     Dosage: 20 MG IN THE MORNING

REACTIONS (16)
  - Gingival disorder [Unknown]
  - Oropharyngeal pain [Not Recovered/Not Resolved]
  - Pain [Unknown]
  - Decreased appetite [Recovering/Resolving]
  - Malaise [Not Recovered/Not Resolved]
  - Irregular breathing [Unknown]
  - Pulmonary oedema [Unknown]
  - Throat irritation [Unknown]
  - Dry skin [Unknown]
  - Glossodynia [Unknown]
  - Retching [Unknown]
  - Intentional product misuse [Unknown]
  - Weight decreased [Unknown]
  - Neoplasm progression [Unknown]
  - Ageusia [Recovering/Resolving]
  - Dry mouth [Unknown]

NARRATIVE: CASE EVENT DATE: 2016
